FAERS Safety Report 5343876-6 (Version None)
Quarter: 2007Q2

REPORT INFORMATION
  Report Type: 
  Country: None (occurrence: None)
  Receive Date: 20070604
  Receipt Date: 20070525
  Transmission Date: 20071010
  Serious: Yes (Other)
  Sender: FDA-Public Use
  Company Number: US-ASTRAZENECA-2007UW13053

PATIENT
  Age: 2 Year
  Sex: Female
  Weight: 9.5 kg

DRUGS (4)
  1. IRESSA [Suspect]
     Indication: PAPILLOMA
     Route: 050
  2. PREVACID [Concomitant]
  3. PEDIASURE WITH FIBER [Concomitant]
  4. ALBUTEROL [Concomitant]

REACTIONS (2)
  - EROSIVE OESOPHAGITIS [None]
  - GASTRITIS EROSIVE [None]
